FAERS Safety Report 7162387-9 (Version None)
Quarter: 2010Q4

REPORT INFORMATION
  Report Type: 
  Country: None (occurrence: None)
  Receive Date: 20101215
  Receipt Date: 20091027
  Transmission Date: 20110411
  Serious: Yes (Other)
  Sender: FDA-Public Use
  Company Number: ES-PFIZER INC-2009257384

PATIENT
  Age: 66 Year
  Sex: Male

DRUGS (6)
  1. LYRICA [Suspect]
     Indication: PAIN
     Dosage: 300 MG, UNK
     Route: 048
     Dates: start: 20080801, end: 20090405
  2. DIAZEPAM [Interacting]
     Indication: PAIN
     Dosage: 5 MG, UNK
     Route: 048
     Dates: start: 20060101, end: 20090405
  3. AMLODIPINE [Concomitant]
     Dosage: 5 MG, 1X/DAY
     Route: 048
  4. METFORMIN HCL [Concomitant]
     Indication: DIABETES MELLITUS
     Dosage: 850 MG, UNK
     Route: 048
  5. INACID [Concomitant]
     Dosage: UNK
     Route: 048
  6. TROMALYT [Concomitant]
     Dosage: 150 MG, 1X/DAY
     Route: 048

REACTIONS (2)
  - DRUG INTERACTION [None]
  - WITHDRAWAL SYNDROME [None]
